FAERS Safety Report 19198623 (Version 1)
Quarter: 2021Q2

REPORT INFORMATION
  Report Type: Spontaneous
  Country: US (occurrence: US)
  Receive Date: 20210430
  Receipt Date: 20210430
  Transmission Date: 20210717
  Serious: No
  Sender: FDA-Public Use
  Company Number: US-SA-2021SA143169

PATIENT
  Sex: Female

DRUGS (1)
  1. DUPIXENT [Suspect]
     Active Substance: DUPILUMAB
     Indication: DERMATITIS ATOPIC
     Dosage: 600 MG, FREQUENCY 1X
     Route: 058
     Dates: start: 20210416, end: 20210416

REACTIONS (4)
  - Rash [Unknown]
  - Insomnia [Unknown]
  - Rash pruritic [Unknown]
  - Discomfort [Unknown]
